FAERS Safety Report 5153622-7 (Version None)
Quarter: 2006Q4

REPORT INFORMATION
  Report Type: 
  Country: None (occurrence: None)
  Receive Date: 20061114
  Receipt Date: 20061031
  Transmission Date: 20070319
  Serious: Yes (Hospitalization)
  Sender: FDA-Public Use
  Company Number: DE-2006-016056

PATIENT
  Sex: Male

DRUGS (1)
  1. BETAFERON (INTERFERON BETA-1B) INJECTION, 250UG [Suspect]
     Dosage: 1.2 ML, SUBCUTANEOUS, SEE IMAGE
     Route: 058
     Dates: end: 20060601

REACTIONS (1)
  - NECROSIS [None]
